FAERS Safety Report 24689122 (Version 1)
Quarter: 2024Q4

REPORT INFORMATION
  Report Type: Spontaneous
  Country: CN (occurrence: CN)
  Receive Date: 20241203
  Receipt Date: 20241203
  Transmission Date: 20250115
  Serious: Yes (Hospitalization)
  Sender: ABBVIE
  Company Number: CN-ABBVIE-6028945

PATIENT
  Age: 65 Year
  Sex: Female
  Weight: 46 kg

DRUGS (3)
  1. VENETOCLAX [Suspect]
     Active Substance: VENETOCLAX
     Indication: Acute lymphocytic leukaemia
     Route: 048
     Dates: start: 20241021, end: 20241031
  2. FLUMATINIB MESYLATE [Suspect]
     Active Substance: FLUMATINIB MESYLATE
     Indication: Acute lymphocytic leukaemia
     Dosage: 0.6 GRAM
     Route: 048
     Dates: start: 20241031, end: 20241110
  3. AZACITIDINE [Suspect]
     Active Substance: AZACITIDINE
     Indication: Acute lymphocytic leukaemia
     Dosage: 100 MILLIGRAM
     Route: 058
     Dates: start: 20241021, end: 20241027

REACTIONS (2)
  - Myelosuppression [Recovering/Resolving]
  - Off label use [Unknown]

NARRATIVE: CASE EVENT DATE: 20240101
